FAERS Safety Report 8104446-X (Version None)
Quarter: 2012Q1

REPORT INFORMATION
  Report Type: 
  Country: None (occurrence: None)
  Receive Date: 20120201
  Receipt Date: 20120126
  Transmission Date: 20120608
  Serious: Yes (Hospitalization)
  Sender: FDA-Public Use
  Company Number: PHHO2011US021754

PATIENT
  Sex: Male
  Weight: 77.1 kg

DRUGS (6)
  1. MYCOPHENOLATE MOFETIL [Suspect]
     Dosage: 500 MG, BID
     Route: 048
     Dates: start: 20111229, end: 20120102
  2. MYCOPHENOLATE MOFETIL [Suspect]
     Dosage: 250 MG, UNK
     Route: 048
     Dates: start: 20120103
  3. PREDNISONE TAB [Suspect]
     Indication: RENAL TRANSPLANT
  4. MYCOPHENOLATE MOFETIL [Suspect]
     Indication: RENAL TRANSPLANT
     Dosage: 1000 MG, BID
     Route: 048
     Dates: start: 20110803, end: 20111228
  5. TACROLIMUS [Suspect]
     Indication: RENAL TRANSPLANT
  6. SIMULECT [Suspect]
     Indication: HEART TRANSPLANT

REACTIONS (2)
  - NON-SMALL CELL LUNG CANCER [None]
  - SUPRAVENTRICULAR TACHYCARDIA [None]
